FAERS Safety Report 7604575-0 (Version None)
Quarter: 2011Q3

REPORT INFORMATION
  Report Type: 
  Country: None (occurrence: None)
  Receive Date: 20110712
  Receipt Date: 20110706
  Transmission Date: 20111222
  Serious: Yes (Death, Hospitalization, Other)
  Sender: FDA-Public Use
  Company Number: US-PFIZER INC-2011121125

PATIENT
  Age: 52 Year
  Sex: Female

DRUGS (5)
  1. METOPROLOL [Concomitant]
     Indication: HYPERTENSION
     Dosage: 25 MG, UNK
  2. SUTENT [Suspect]
     Indication: RENAL CANCER METASTATIC
     Dosage: 50 MG, 1X/DAY
     Route: 048
     Dates: start: 20110404, end: 20110505
  3. OXYCODONE [Concomitant]
     Indication: PAIN
     Dosage: 5 MG, UNK
  4. NORVASC [Concomitant]
     Indication: HYPERTENSION
     Dosage: 10 MG, UNK
     Route: 048
  5. LISINOPRIL [Concomitant]
     Indication: HYPERTENSION
     Dosage: 5 MG, UNK

REACTIONS (4)
  - TUMOUR LYSIS SYNDROME [None]
  - RENAL FAILURE [None]
  - DEHYDRATION [None]
  - PNEUMONIA ASPIRATION [None]
